FAERS Safety Report 18431489 (Version 2)
Quarter: 2020Q4

REPORT INFORMATION
  Report Type: Spontaneous
  Country: CL (occurrence: CL)
  Receive Date: 20201027
  Receipt Date: 20201120
  Transmission Date: 20210114
  Serious: No
  Sender: FDA-Public Use
  Company Number: CL-PFIZER INC-2020400745

PATIENT
  Age: 37 Year
  Sex: Female

DRUGS (1)
  1. SAYANA PRESS [Suspect]
     Active Substance: MEDROXYPROGESTERONE\MEDROXYPROGESTERONE ACETATE
     Indication: CONTRACEPTION
     Dosage: 1 DF, EVERY 3 MONTHS

REACTIONS (2)
  - Device failure [Unknown]
  - Incorrect dose administered by device [Unknown]
